FAERS Safety Report 19623491 (Version 1)
Quarter: 2021Q3

REPORT INFORMATION
  Report Type: Spontaneous
  Country: CZ (occurrence: CZ)
  Receive Date: 20210728
  Receipt Date: 20210728
  Transmission Date: 20211014
  Serious: Yes (Life-Threatening)
  Sender: FDA-Public Use
  Company Number: CZ-MSNLABS-2021MSNLIT00276

PATIENT

DRUGS (1)
  1. DEFERASIROX TABLETS 360 MG [Suspect]
     Active Substance: DEFERASIROX
     Indication: PRODUCT USED FOR UNKNOWN INDICATION
     Route: 065

REACTIONS (1)
  - Hyperammonaemia [Unknown]
